FAERS Safety Report 8929314 (Version 1)
Quarter: 2012Q4

REPORT INFORMATION
  Report Type: Spontaneous
  Country: US (occurrence: None)
  Receive Date: 20121126
  Receipt Date: 20121126
  Transmission Date: 20130627
  Serious: No
  Sender: FDA-Public Use
  Company Number: None

PATIENT
  Age: 78 Year
  Sex: Female
  Weight: 58.06 kg

DRUGS (2)
  1. DYRENIUM [Suspect]
     Indication: HYPERTENSION
     Dosage: 50 mg capsul Once Daily
     Dates: start: 20120904, end: 20121022
  2. TRIAMTERENE [Suspect]
     Indication: HYPERTENSION
     Dosage: 75-50mg tablet Once Daily
     Dates: start: 20101208

REACTIONS (4)
  - Swelling face [None]
  - Rash [None]
  - Oedema peripheral [None]
  - Joint swelling [None]
